FAERS Safety Report 9361768 (Version 1)
Quarter: 2013Q2

REPORT INFORMATION
  Report Type: Spontaneous
  Country: FR (occurrence: FR)
  Receive Date: 20130621
  Receipt Date: 20130621
  Transmission Date: 20140414
  Serious: Yes (Hospitalization)
  Sender: FDA-Public Use
  Company Number: PHHY2013FR062710

PATIENT
  Age: 68 Year
  Sex: Male

DRUGS (4)
  1. FUROSEMIDE SANDOZ [Suspect]
     Indication: OEDEMA DUE TO CARDIAC DISEASE
     Dosage: 1 DF, QD
     Route: 048
     Dates: start: 200712, end: 20080623
  2. AMIODARONE SANDOZ [Suspect]
     Indication: ATRIAL FIBRILLATION
     Dosage: 0.714 DF, (1 DF, 5 IN 7 DAYS)
     Route: 048
     Dates: end: 20080622
  3. CARDENSIEL [Suspect]
     Indication: CARDIAC FAILURE
     Dosage: 2 DF, (1 DF, 2 IN 1 DAY)
     Route: 048
     Dates: end: 20080622
  4. COVERSYL [Concomitant]
     Dosage: 1 DF, (1 DF, 1 IN 1 DAY)
     Dates: start: 200804, end: 20080622

REACTIONS (6)
  - Hypokalaemia [Recovered/Resolved]
  - Syncope [Recovered/Resolved]
  - Bradycardia [None]
  - Bundle branch block left [None]
  - Atrioventricular block first degree [None]
  - Anaemia macrocytic [None]
